FAERS Safety Report 7791255-4 (Version None)
Quarter: 2011Q4

REPORT INFORMATION
  Report Type: 
  Country: None (occurrence: None)
  Receive Date: 20111003
  Receipt Date: 20110927
  Transmission Date: 20120403
  Serious: No
  Sender: FDA-Public Use
  Company Number: US-BIOGENIDEC-2011BI037092

PATIENT
  Sex: Female

DRUGS (4)
  1. TYSABRI [Suspect]
     Indication: MULTIPLE SCLEROSIS
     Route: 042
     Dates: start: 20110329
  2. GAVAPENTIN [Concomitant]
  3. CYMBALTA [Concomitant]
  4. LYRICA [Concomitant]

REACTIONS (4)
  - FEELING JITTERY [None]
  - TREMOR [None]
  - DRUG THERAPY CHANGED [None]
  - JOINT SWELLING [None]
